FAERS Safety Report 23951572 (Version 1)
Quarter: 2024Q2

REPORT INFORMATION
  Report Type: Spontaneous
  Country: US (occurrence: US)
  Receive Date: 20240607
  Receipt Date: 20240607
  Transmission Date: 20240715
  Serious: No
  Sender: FDA-Public Use
  Company Number: US-PFIZER INC-202400187640

PATIENT
  Age: 69 Year
  Sex: Male
  Weight: 111.13 kg

DRUGS (16)
  1. NURTEC ODT [Suspect]
     Active Substance: RIMEGEPANT SULFATE
     Indication: Migraine
     Dosage: 75MG TABLET PLACED UNDER TONGUE EVERY OTHER DAY
     Route: 060
     Dates: start: 20240507, end: 2024
  2. TAMSULOSIN [Concomitant]
     Active Substance: TAMSULOSIN
     Indication: Renal pain
     Dosage: 4MG CAPSULE BY MOUTH
     Route: 048
  3. METOPROLOL SUCCINATE [Concomitant]
     Active Substance: METOPROLOL SUCCINATE
     Indication: Hypertension
     Dosage: 50MG TABLET EVERY DAY ONCE IN THE MORNING BY MOUTH
     Route: 048
  4. CELECOXIB [Concomitant]
     Active Substance: CELECOXIB
     Indication: Arthralgia
     Dosage: 200MG TABLET AS NEEDED BY MOUTH
     Route: 048
  5. SOTALOL [Concomitant]
     Active Substance: SOTALOL
     Indication: Cardiac disorder
     Dosage: 80MG TABLET ONE MORNING AND NIGHT BY MOUTH
     Route: 048
  6. ELIQUIS [Concomitant]
     Active Substance: APIXABAN
     Dosage: 5MG TABLET MORNING AND NIGHT BY MOUTH
     Route: 048
  7. POLYETHYLENE GLYCOLS [Concomitant]
     Active Substance: POLYETHYLENE GLYCOLS
     Indication: Faeces hard
     Dosage: ONE CAPSULE IN THE MORNING BY MOUTH
     Route: 048
  8. DOCUSATE SODIUM [Concomitant]
     Active Substance: DOCUSATE SODIUM
     Indication: Faeces hard
     Dosage: 100MG ROUND SOFT GEL ONCE IN THE MORNING BY MOUTH
     Route: 048
  9. ZYRTEC [Concomitant]
     Active Substance: CETIRIZINE HYDROCHLORIDE
     Indication: Hypersensitivity
     Dosage: 10MG TABLET ONCE IN THE MORNING BY MOUTH
     Route: 048
  10. IRON [Concomitant]
     Active Substance: IRON
     Indication: Mineral supplementation
     Dosage: 65MG TABLET ONCE IN THE MORNING BY MOUTH
     Route: 048
  11. ATORVASTATIN [Concomitant]
     Active Substance: ATORVASTATIN
     Indication: Blood cholesterol decreased
     Dosage: 40MG TABLET IN THE EVENING BY MOUTH
     Route: 048
  12. ASPIRIN [Concomitant]
     Active Substance: ASPIRIN
     Indication: Pain
     Dosage: 81MG LOW DOSE, TABLET, ONCE IN THE EVENING BY MOUTH
     Route: 048
  13. CO-Q-10 PLUS [Concomitant]
     Indication: Arthralgia
     Dosage: 200MG SOFT GEL ONE IN THE EVENING BY MOUTH
     Route: 048
  14. BENADRYL [Concomitant]
     Active Substance: DIPHENHYDRAMINE HYDROCHLORIDE
     Indication: Hypersensitivity
     Dosage: 25MG AS NEEDED BY MOUTH
     Route: 048
  15. FLUTICASONE PROPIONATE [Concomitant]
     Active Substance: FLUTICASONE PROPIONATE
     Indication: Hypersensitivity
     Dosage: NASAL SPRAY
     Route: 045
  16. MUCINEX DM [Concomitant]
     Active Substance: DEXTROMETHORPHAN HYDROBROMIDE\GUAIFENESIN
     Indication: Nasal congestion
     Dosage: TABLET AS NEEDED BY MOUTH
     Route: 048

REACTIONS (3)
  - Nausea [Unknown]
  - Headache [Unknown]
  - Illness [Unknown]

NARRATIVE: CASE EVENT DATE: 20240507
